FAERS Safety Report 10181396 (Version 3)
Quarter: 2014Q3

REPORT INFORMATION
  Report Type: Spontaneous
  Country: US (occurrence: US)
  Receive Date: 20140519
  Receipt Date: 20140723
  Transmission Date: 20150326
  Serious: Yes (Hospitalization)
  Sender: FDA-Public Use
  Company Number: US-ASTELLAS-2014US005482

PATIENT
  Sex: Female

DRUGS (1)
  1. MYRBETRIQ [Suspect]
     Active Substance: MIRABEGRON
     Indication: HYPERTONIC BLADDER
     Route: 048
     Dates: start: 201402

REACTIONS (2)
  - Dementia [Unknown]
  - Pollakiuria [Recovered/Resolved]

NARRATIVE: CASE EVENT DATE: 2014
